FAERS Safety Report 7792420-2 (Version None)
Quarter: 2011Q3

REPORT INFORMATION
  Report Type: 
  Country: None (occurrence: None)
  Receive Date: 20110930
  Receipt Date: 20110930
  Transmission Date: 20111222
  Serious: Yes (Life-Threatening, Hospitalization, Disabling, Other)
  Sender: FDA-Public Use
  Company Number: None

PATIENT
  Age: 64 Year
  Sex: Female
  Weight: 54.4316 kg

DRUGS (1)
  1. RECLAST [Suspect]

REACTIONS (17)
  - VOMITING [None]
  - ABDOMINAL PAIN UPPER [None]
  - BONE PAIN [None]
  - HYPERTENSION [None]
  - PAIN IN JAW [None]
  - ASTHMA [None]
  - ANXIETY [None]
  - DEHYDRATION [None]
  - FATIGUE [None]
  - NAUSEA [None]
  - CARDIAC DISORDER [None]
  - HEADACHE [None]
  - ALOPECIA [None]
  - RENAL FAILURE [None]
  - PRODUCT QUALITY ISSUE [None]
  - DYSPEPSIA [None]
  - BRONCHITIS [None]
